FAERS Safety Report 7259705-X (Version None)
Quarter: 2011Q1

REPORT INFORMATION
  Report Type: 
  Country: None (occurrence: None)
  Receive Date: 20110130
  Receipt Date: 20100903
  Transmission Date: 20110831
  Serious: No
  Sender: FDA-Public Use
  Company Number: US-ABBOTT-10P-163-0658009-00

PATIENT
  Age: 60 Year
  Sex: Female

DRUGS (10)
  1. HUMIRA [Suspect]
     Indication: PSORIATIC ARTHROPATHY
  2. CALCIUM [Concomitant]
  3. ASA [Concomitant]
     Indication: CARDIAC DISORDER
  4. FOLIC ACID [Concomitant]
  5. ASA [Concomitant]
     Indication: FAMILIAL RISK FACTOR
  6. FISH OIL [Concomitant]
  7. GABAPENTIN [Concomitant]
     Indication: FIBROMYALGIA
     Dosage: 1-2 CAPSULES EVERY EVENING
  8. XANAX [Concomitant]
     Indication: ANXIETY
     Dosage: 1-2 TABLETS AS NEEDED
  9. ASA [Concomitant]
     Indication: PROPHYLAXIS
  10. MULTI-VITAMIN [Concomitant]

REACTIONS (3)
  - WRONG TECHNIQUE IN DRUG USAGE PROCESS [None]
  - INJECTION SITE HAEMATOMA [None]
  - INJECTION SITE SWELLING [None]
